FAERS Safety Report 5289875-4 (Version None)
Quarter: 2007Q2

REPORT INFORMATION
  Report Type: 
  Country: None (occurrence: None)
  Receive Date: 20070406
  Receipt Date: 20070323
  Transmission Date: 20071010
  Serious: Yes (Hospitalization)
  Sender: FDA-Public Use
  Company Number: CH-GENENTECH-239403

PATIENT
  Age: 40 Year
  Sex: Female

DRUGS (9)
  1. AVASTIN [Suspect]
     Indication: COLON CANCER
     Dosage: 300 MG, Q2W
     Route: 042
     Dates: start: 20060726
  2. IRINOTECAN HCL [Suspect]
     Indication: COLON CANCER
     Dosage: 300 MG, Q2W
     Route: 042
     Dates: start: 20000426
  3. NEXIUM [Suspect]
     Indication: GASTRITIS
     Dosage: 40 MG, BID
     Route: 048
     Dates: start: 20070209
  4. IBUPROFEN [Suspect]
     Indication: PAIN
     Dosage: 600 MG, TID
     Dates: start: 20061225
  5. FLUOROURACIL [Suspect]
     Indication: COLON CANCER
     Dosage: 450 MG, 2/MONTH
     Route: 042
     Dates: start: 20060426
  6. DAFALGAN [Concomitant]
     Indication: DRUG USE FOR UNKNOWN INDICATION
  7. PANTOZOL [Concomitant]
     Indication: DRUG USE FOR UNKNOWN INDICATION
  8. ANXIOLYTIC NOS [Concomitant]
     Indication: DRUG USE FOR UNKNOWN INDICATION
  9. SIRDALUD [Concomitant]
     Indication: DRUG USE FOR UNKNOWN INDICATION

REACTIONS (1)
  - PANCREATITIS ACUTE [None]
